FAERS Safety Report 9361265 (Version 1)
Quarter: 2013Q2

REPORT INFORMATION
  Report Type: Spontaneous
  Country: DE (occurrence: DE)
  Receive Date: 20130621
  Receipt Date: 20130621
  Transmission Date: 20140414
  Serious: Yes (Death, Hospitalization)
  Sender: FDA-Public Use
  Company Number: DE-JNJFOC-20130609893

PATIENT
  Sex: 0

DRUGS (9)
  1. ABCIXIMAB [Suspect]
     Indication: MYOCARDIAL INFARCTION
     Route: 042
  2. CLOPIDOGREL [Concomitant]
     Route: 065
  3. UNFRACTIONATED HEPARIN [Concomitant]
     Route: 065
  4. ENOXAPARIN [Concomitant]
     Route: 065
  5. STATINS [Concomitant]
     Route: 065
  6. BETA BLOCKERS, NOS [Concomitant]
     Route: 065
  7. ANGIOTENSIN-CONVERTING ENZYME INHIBITORS [Concomitant]
     Route: 065
  8. ANGIOTENSIN RECEPTOR BLOCKER NOS [Concomitant]
     Route: 065
  9. ASA [Concomitant]
     Route: 065

REACTIONS (4)
  - Death [Fatal]
  - Thrombocytopenia [Unknown]
  - Myocardial infarction [Unknown]
  - Haemorrhage [Unknown]
